FAERS Safety Report 5488562-7 (Version None)
Quarter: 2007Q3

REPORT INFORMATION
  Report Type: 
  Country: None (occurrence: None)
  Receive Date: 20070925
  Receipt Date: 20070719
  Transmission Date: 20080115
  Serious: No
  Sender: FDA-Public Use
  Company Number: 2007US001677

PATIENT
  Age: 83 Year
  Sex: Female

DRUGS (7)
  1. VESICARE [Suspect]
     Indication: HYPERTONIC BLADDER
     Dosage: 5 MG, UID/QD, ORAL
     Route: 048
     Dates: start: 20070628, end: 20070701
  2. MACROBID [Concomitant]
  3. ISOSORBIDE (ISOSORBIDE) [Concomitant]
  4. ALDACTAZIDE [Concomitant]
  5. PRILOSEC [Concomitant]
  6. NITROGLYCERIN [Concomitant]
  7. CIPROFLOXACIN [Concomitant]

REACTIONS (4)
  - CONSTIPATION [None]
  - CYST [None]
  - DRY MOUTH [None]
  - OEDEMA PERIPHERAL [None]
